FAERS Safety Report 6092937-5 (Version None)
Quarter: 2009Q1

REPORT INFORMATION
  Report Type: 
  Country: None (occurrence: None)
  Receive Date: 20090223
  Receipt Date: 20090209
  Transmission Date: 20090719
  Serious: Yes (Other)
  Sender: FDA-Public Use
  Company Number: 2009AL000802

PATIENT
  Age: 59 Year
  Sex: Female

DRUGS (5)
  1. RAMIPRIL [Suspect]
     Indication: HYPERTENSION
     Dosage: 2.5 MG; QD; PO
     Route: 048
     Dates: start: 20081106, end: 20081202
  2. EFFEXOR [Concomitant]
  3. BENDROFLUAZIDE [Concomitant]
  4. CRESTOR [Concomitant]
  5. ACETYLSALICYLIC ACID [Concomitant]

REACTIONS (7)
  - COUGH [None]
  - FATIGUE [None]
  - IMPAIRED WORK ABILITY [None]
  - MALAISE [None]
  - RASH [None]
  - RASH PRURITIC [None]
  - SWELLING FACE [None]
